FAERS Safety Report 12949564 (Version 1)
Quarter: 2016Q4

REPORT INFORMATION
  Report Type: Spontaneous
  Country: US (occurrence: US)
  Receive Date: 20161117
  Receipt Date: 20161117
  Transmission Date: 20170207
  Serious: No
  Sender: FDA-Public Use
  Company Number: US-JNJFOC-20161022430

PATIENT
  Age: 74 Year
  Sex: Female
  Weight: 40.82 kg

DRUGS (2)
  1. SUDAFED NASAL DECONGESTANT MAXIMUM STRENGTH [Suspect]
     Active Substance: PSEUDOEPHEDRINE HYDROCHLORIDE
     Indication: HEADACHE
     Dosage: FOR A YEAR
     Route: 048
     Dates: end: 20161021
  2. SUDAFED NASAL DECONGESTANT MAXIMUM STRENGTH [Suspect]
     Active Substance: PSEUDOEPHEDRINE HYDROCHLORIDE
     Indication: SINUS CONGESTION
     Dosage: FOR A YEAR
     Route: 048
     Dates: end: 20161021

REACTIONS (5)
  - Tinnitus [Not Recovered/Not Resolved]
  - Intentional product use issue [Unknown]
  - Adverse event [Not Recovered/Not Resolved]
  - Irritable bowel syndrome [Not Recovered/Not Resolved]
  - Intentional product misuse [Unknown]
